FAERS Safety Report 9884072 (Version 2)
Quarter: 2014Q1

REPORT INFORMATION
  Report Type: Spontaneous
  Country: US (occurrence: US)
  Receive Date: 20140210
  Receipt Date: 20140210
  Transmission Date: 20141002
  Serious: No
  Sender: FDA-Public Use
  Company Number: US-ALLERGAN-1316571US

PATIENT
  Sex: Female

DRUGS (3)
  1. BOTOX COSMETIC [Suspect]
     Indication: SKIN WRINKLING
     Dosage: 36 UNITS, SINGLE
     Route: 030
     Dates: start: 201306
  2. BOTOX COSMETIC [Suspect]
     Indication: FACE LIFT
  3. BOTOX COSMETIC [Suspect]
     Indication: SKIN WRINKLING

REACTIONS (3)
  - Skin wrinkling [Unknown]
  - Off label use [Unknown]
  - Therapeutic response decreased [Unknown]
